FAERS Safety Report 17065431 (Version 1)
Quarter: 2019Q4

REPORT INFORMATION
  Report Type: Spontaneous
  Country: US (occurrence: US)
  Receive Date: 20191122
  Receipt Date: 20191122
  Transmission Date: 20200122
  Serious: No
  Sender: FDA-Public Use
  Company Number: None

PATIENT
  Age: 44 Year
  Sex: Female
  Weight: 74.25 kg

DRUGS (2)
  1. MALLINCKRODT METHYLPHENIDATE ER 54MG [Suspect]
     Active Substance: METHYLPHENIDATE
     Indication: ATTENTION DEFICIT/HYPERACTIVITY DISORDER
     Route: 048
     Dates: start: 20190726, end: 20191029
  2. GENERIC CONCERTA, METHYLPHENIDATE ER 54MG [Suspect]
     Active Substance: METHYLPHENIDATE
     Indication: ATTENTION DEFICIT/HYPERACTIVITY DISORDER
     Route: 048
     Dates: start: 20191029, end: 20191122

REACTIONS (6)
  - Somnolence [None]
  - Depression [None]
  - Disturbance in attention [None]
  - Lethargy [None]
  - Headache [None]
  - Product substitution issue [None]

NARRATIVE: CASE EVENT DATE: 20191030
